FAERS Safety Report 14079843 (Version 1)
Quarter: 2017Q4

REPORT INFORMATION
  Report Type: Spontaneous
  Country: US (occurrence: US)
  Receive Date: 20171012
  Receipt Date: 20171012
  Transmission Date: 20180321
  Serious: No
  Sender: FDA-Public Use
  Company Number: US-AMNEAL PHARMACEUTICALS-2017AMN00810

PATIENT
  Age: 86 Year
  Sex: Female
  Weight: 59.86 kg

DRUGS (3)
  1. DICLOFENAC SODIUM. [Suspect]
     Active Substance: DICLOFENAC SODIUM
     Indication: PAIN IN EXTREMITY
  2. METOPROLOL ER [Concomitant]
     Active Substance: METOPROLOL SUCCINATE
     Dosage: UNK
  3. AMLODIPINE [Concomitant]
     Active Substance: AMLODIPINE BESYLATE
     Dosage: UNK, 1X/DAY

REACTIONS (1)
  - Dizziness [Recovered/Resolved]

NARRATIVE: CASE EVENT DATE: 20170818
